FAERS Safety Report 10190369 (Version 1)
Quarter: 2014Q2

REPORT INFORMATION
  Report Type: Spontaneous
  Country: JP (occurrence: JP)
  Receive Date: 20140522
  Receipt Date: 20140522
  Transmission Date: 20141212
  Serious: Yes (Hospitalization)
  Sender: FDA-Public Use
  Company Number: JP-ASTRAZENECA-2014SE33595

PATIENT
  Age: 55 Year
  Sex: Male
  Weight: 66 kg

DRUGS (10)
  1. CRESTOR [Suspect]
     Indication: DYSLIPIDAEMIA
     Route: 048
  2. ROPION [Interacting]
     Indication: POSTOPERATIVE ANALGESIA
     Route: 065
  3. PROPOFOL [Concomitant]
     Indication: INDUCTION OF ANAESTHESIA
     Route: 042
  4. ROCURONIUM BROMIDE [Concomitant]
     Indication: INDUCTION OF ANAESTHESIA
     Route: 042
  5. SEVOFLURANE [Concomitant]
     Indication: INDUCTION AND MAINTENANCE OF ANAESTHESIA
     Dosage: INDUCTION OF ANAESTHESIA
     Route: 055
  6. SEVOFLURANE [Concomitant]
     Indication: INDUCTION AND MAINTENANCE OF ANAESTHESIA
     Dosage: 1-1.5 % FOR MAINTENANCE OF ANAESTHESIA
     Route: 055
  7. REMIFENTANIL HYDROCHLORIDE [Concomitant]
     Indication: INDUCTION AND MAINTENANCE OF ANAESTHESIA
     Dosage: 0.3 MCG/KG/MIN FOR INDUCTION OF ANAESTHESIA
     Route: 042
  8. REMIFENTANIL HYDROCHLORIDE [Concomitant]
     Indication: INDUCTION AND MAINTENANCE OF ANAESTHESIA
     Dosage: 0.05 - 0.1 MCG/KG/MIN FOR MAINTENANCE OF ANAESTHESIA
     Route: 042
  9. FENTANYL [Concomitant]
     Indication: MAINTENANCE OF ANAESTHESIA
     Route: 042
  10. LIVALO [Concomitant]
     Indication: DYSLIPIDAEMIA
     Route: 048
     Dates: start: 2008

REACTIONS (2)
  - Drug interaction [Recovered/Resolved]
  - Rhabdomyolysis [Recovered/Resolved]
